FAERS Safety Report 6644249-6 (Version None)
Quarter: 2010Q1

REPORT INFORMATION
  Report Type: 
  Country: None (occurrence: None)
  Receive Date: 20100317
  Receipt Date: 20100303
  Transmission Date: 20100710
  Serious: Yes (Hospitalization)
  Sender: FDA-Public Use
  Company Number: DSJ-2010-01524

PATIENT
  Age: 60 Year
  Sex: Male
  Weight: 83 kg

DRUGS (6)
  1. OLMESARTAN MEDOXOMIL [Suspect]
     Indication: ESSENTIAL HYPERTENSION
     Dates: start: 20060527
  2. PRAVASTATIN [Concomitant]
  3. NORVASC [Concomitant]
  4. ALLOPURINOL [Concomitant]
  5. BLOPRESS (CANDESARTAN [Concomitant]
  6. CALBLOCK (AZELNIDIPINE) [Concomitant]

REACTIONS (2)
  - PROSTATE CANCER [None]
  - URINARY INCONTINENCE [None]
